FAERS Safety Report 19004399 (Version 6)
Quarter: 2021Q3

REPORT INFORMATION
  Report Type: Report from Study
  Country: US (occurrence: US)
  Receive Date: 20210312
  Receipt Date: 20210702
  Transmission Date: 20211014
  Serious: Yes (Hospitalization)
  Sender: FDA-Public Use
  Company Number: US-B.I. PHARMACEUTICALS,INC./RIDGEFIELD-2020-MR-031565

PATIENT
  Age: 84 Year
  Sex: Male
  Weight: 77 kg

DRUGS (3)
  1. OFEV [Suspect]
     Active Substance: NINTEDANIB
     Indication: IDIOPATHIC PULMONARY FIBROSIS
     Dosage: 150 MG BY MOUTH TWICE DAILY
     Route: 048
     Dates: start: 20200603, end: 20200713
  2. OFEV [Suspect]
     Active Substance: NINTEDANIB
     Dosage: 100 MG BID
     Route: 048
     Dates: start: 20210131, end: 20210528
  3. ESBRIET [Suspect]
     Active Substance: PIRFENIDONE
     Indication: PRODUCT USED FOR UNKNOWN INDICATION

REACTIONS (12)
  - Diarrhoea [Recovered/Resolved]
  - Hypoperfusion [Unknown]
  - Nausea [Unknown]
  - Cardiac pacemaker insertion [Recovered/Resolved]
  - Diarrhoea [Not Recovered/Not Resolved]
  - Liver function test increased [Recovered/Resolved]
  - Fluid retention [Not Recovered/Not Resolved]
  - Bradycardia [Unknown]
  - Atrioventricular block [Recovered/Resolved]
  - Blood pressure decreased [Recovered/Resolved]
  - Decreased appetite [Not Recovered/Not Resolved]
  - Gastrointestinal disorder [Unknown]

NARRATIVE: CASE EVENT DATE: 20200711
